FAERS Safety Report 17366789 (Version 5)
Quarter: 2020Q4

REPORT INFORMATION
  Report Type: Spontaneous
  Country: PT (occurrence: PT)
  Receive Date: 20200204
  Receipt Date: 20201119
  Transmission Date: 20210113
  Serious: Yes (Other)
  Sender: FDA-Public Use
  Company Number: PT-JNJFOC-20200144638

PATIENT
  Age: 67 Year
  Sex: Male

DRUGS (3)
  1. SIMPONI [Suspect]
     Active Substance: GOLIMUMAB
     Indication: COLITIS ULCERATIVE
     Route: 058
     Dates: start: 20190524, end: 201910
  2. SIMPONI [Suspect]
     Active Substance: GOLIMUMAB
  3. MESALAZINE [Concomitant]
     Active Substance: MESALAMINE
     Indication: COLITIS ULCERATIVE
     Route: 065
     Dates: start: 201905

REACTIONS (4)
  - Proctalgia [Unknown]
  - Rectal tenesmus [Unknown]
  - Drug ineffective [Unknown]
  - Diarrhoea haemorrhagic [Unknown]

NARRATIVE: CASE EVENT DATE: 20190524
